FAERS Safety Report 5336672-7 (Version None)
Quarter: 2007Q2

REPORT INFORMATION
  Report Type: 
  Country: None (occurrence: None)
  Receive Date: 20070524
  Receipt Date: 20070524
  Transmission Date: 20071010
  Serious: Yes (Life-Threatening, Hospitalization, Disabling)
  Sender: FDA-Public Use
  Company Number: None

PATIENT
  Age: 55 Year
  Sex: Female
  Weight: 86 kg

DRUGS (1)
  1. LISINOPRIL [Suspect]
     Indication: HYPERTENSION
     Dosage: 20 MG ONCE PO
     Route: 048
     Dates: start: 20070508, end: 20070508

REACTIONS (3)
  - ANGIOEDEMA [None]
  - RESPIRATORY FAILURE [None]
  - VOMITING [None]
